FAERS Safety Report 7040264-1 (Version None)
Quarter: 2010Q4

REPORT INFORMATION
  Report Type: 
  Country: None (occurrence: None)
  Receive Date: 20101012
  Receipt Date: 20101012
  Transmission Date: 20110411
  Serious: Yes (Other)
  Sender: FDA-Public Use
  Company Number: US-PFIZER INC-2010099344

PATIENT
  Sex: Male
  Weight: 89.796 kg

DRUGS (25)
  1. REVATIO [Suspect]
     Indication: CHRONIC OBSTRUCTIVE PULMONARY DISEASE
     Dosage: 10 MG, 2X/DAY
     Route: 048
     Dates: start: 20100602, end: 20100701
  2. XOPENEX [Concomitant]
     Dosage: 45 UG, AS NEEDED
  3. XOPENEX [Concomitant]
     Dosage: 1.25 ML, 1X/DAY
  4. SPIRIVA [Concomitant]
     Dosage: 18 UG, UNK
  5. KEPPRA [Concomitant]
     Dosage: 750 MG, DAILY
  6. ZITHROMAX [Concomitant]
     Dosage: 215 MG, DAILY
  7. BACTRIM DS [Concomitant]
     Dosage: UNK, 2X/WEEK
  8. VITAMIN D [Concomitant]
     Dosage: 400 IU, DAILY
  9. OS-CAL [Concomitant]
     Dosage: 600 MG, 3X/DAY
  10. LASIX [Concomitant]
     Dosage: 20 MG, UNK
  11. ASPIRIN [Concomitant]
     Dosage: 650 MG, DAILY
  12. CARDIZEM [Concomitant]
     Dosage: 300 MG, AS NEEDED
  13. ALTACE [Concomitant]
     Dosage: 2.5 MG, 2X/DAY
  14. CLOTRIMAZOLE [Concomitant]
     Dosage: 10 MG, 4X/DAY
  15. MIACALCIN [Concomitant]
     Dosage: 3.7 ML, DAILY
  16. TYLENOL W/ CODEINE NO. 3 [Concomitant]
     Dosage: UNK, AS NEEDED
  17. PULMOZYME [Concomitant]
     Dosage: 2.5 ML, 2X/DAY
  18. PROTONIX [Concomitant]
     Dosage: 40 MG, DAILY
  19. SYSTANE [Concomitant]
     Dosage: UNK, 4X/DAY
     Route: 047
  20. DIFLUPREDNATE [Concomitant]
     Dosage: UNK, 2X/DAY
  21. PREDNISONE [Concomitant]
     Dosage: 10 MG, DAILY
  22. ANDROGEL [Concomitant]
     Dosage: 1 %, UNK
  23. SYNTHROID [Concomitant]
     Dosage: 88 UG, DAILY
  24. FLOMAX [Concomitant]
     Dosage: 0.4 MG, UNK
  25. CENTRUM SILVER [Concomitant]
     Dosage: UNK, DAILY

REACTIONS (4)
  - ABNORMAL FAECES [None]
  - GASTROINTESTINAL DISORDER [None]
  - RASH GENERALISED [None]
  - WRONG TECHNIQUE IN DRUG USAGE PROCESS [None]
